FAERS Safety Report 4678613-1 (Version None)
Quarter: 2005Q2

REPORT INFORMATION
  Report Type: 
  Country: None (occurrence: None)
  Receive Date: 20050527
  Receipt Date: 20050519
  Transmission Date: 20051028
  Serious: Yes (Other)
  Sender: FDA-Public Use
  Company Number: 2005RL000059

PATIENT
  Age: 9 Month
  Sex: Male
  Weight: 9 kg

DRUGS (1)
  1. PROPAFENONE HCL [Suspect]
     Indication: TACHYCARDIA

REACTIONS (8)
  - ACIDOSIS [None]
  - ATRIOVENTRICULAR BLOCK COMPLETE [None]
  - BUNDLE BRANCH BLOCK RIGHT [None]
  - ELECTROCARDIOGRAM QRS COMPLEX PROLONGED [None]
  - HYPOTENSION [None]
  - NODAL ARRHYTHMIA [None]
  - PROCEDURAL COMPLICATION [None]
  - VENTRICULAR ARRHYTHMIA [None]
